FAERS Safety Report 10272192 (Version 1)
Quarter: 2014Q3

REPORT INFORMATION
  Report Type: Report from Study
  Country: US (occurrence: US)
  Receive Date: 20140702
  Receipt Date: 20140702
  Transmission Date: 20150326
  Serious: Yes (Other)
  Sender: FDA-Public Use
  Company Number: US-ROCHE-1426466

PATIENT
  Age: 11 Year
  Sex: Male
  Weight: 30.3 kg

DRUGS (3)
  1. NUTROPIN AQ [Suspect]
     Active Substance: SOMATROPIN
     Indication: PRODUCT USED FOR UNKNOWN INDICATION
     Route: 058
  2. GUANFACINE. [Concomitant]
     Active Substance: GUANFACINE
  3. PROZAC [Concomitant]
     Active Substance: FLUOXETINE HYDROCHLORIDE

REACTIONS (3)
  - Abnormal behaviour [Unknown]
  - Lymphadenopathy [Unknown]
  - Otitis media [Unknown]

NARRATIVE: CASE EVENT DATE: 201406
